FAERS Safety Report 22988591 (Version 2)
Quarter: 2023Q4

REPORT INFORMATION
  Report Type: Spontaneous
  Country: CN (occurrence: CN)
  Receive Date: 20230926
  Receipt Date: 20231004
  Transmission Date: 20240110
  Serious: No
  Sender: FDA-Public Use
  Company Number: CN-DSJP-DSJ-2023-139264

PATIENT
  Age: 68 Year
  Sex: Female

DRUGS (3)
  1. ENHERTU [Suspect]
     Active Substance: FAM-TRASTUZUMAB DERUXTECAN-NXKI
     Indication: Breast cancer
     Dosage: 200 MG, ONCE EVERY 3 WK
     Route: 041
     Dates: start: 20230823, end: 20230823
  2. STERILE WATER FOR INJECTION [Suspect]
     Active Substance: WATER
     Indication: Medication dilution
     Dosage: 20 ML, ONCE EVERY 3 WK
     Route: 041
     Dates: start: 20230823, end: 20230823
  3. DEXTROSE [Suspect]
     Active Substance: DEXTROSE\DEXTROSE MONOHYDRATE
     Indication: Medication dilution
     Dosage: 100 ML, ONCE EVERY 3 WK
     Route: 041
     Dates: start: 20230823, end: 20230823

REACTIONS (8)
  - Vasospasm [Unknown]
  - Mouth ulceration [Unknown]
  - Decreased appetite [Unknown]
  - Headache [Unknown]
  - Myalgia [Unknown]
  - Bone pain [Unknown]
  - Sleep disorder [Unknown]
  - Pyrexia [Unknown]

NARRATIVE: CASE EVENT DATE: 20230824
